APPROVED DRUG PRODUCT: ACYCLOVIR SODIUM
Active Ingredient: ACYCLOVIR SODIUM
Strength: EQ 500MG BASE/VIAL
Dosage Form/Route: INJECTABLE;INJECTION
Application: A205771 | Product #001
Applicant: HIKMA PHARMACEUTICALS LLC
Approved: Feb 29, 2016 | RLD: No | RS: No | Type: DISCN